FAERS Safety Report 21874637 (Version 1)
Quarter: 2023Q1

REPORT INFORMATION
  Report Type: Report from Study
  Country: US (occurrence: None)
  Receive Date: 20230117
  Receipt Date: 20230117
  Transmission Date: 20230418
  Serious: Yes (Other)
  Sender: FDA-Public Use
  Company Number: 2023A005289

PATIENT
  Sex: Male
  Weight: 81.2 kg

DRUGS (1)
  1. CALQUENCE [Suspect]
     Active Substance: ACALABRUTINIB
     Route: 048

REACTIONS (2)
  - Blindness transient [Unknown]
  - Ocular hyperaemia [Unknown]
